FAERS Safety Report 8840365 (Version 1)
Quarter: 2012Q4

REPORT INFORMATION
  Report Type: 
  Country: US (occurrence: US)
  Receive Date: 20121015
  Receipt Date: 20121015
  Transmission Date: 20130627
  Serious: No
  Sender: FDA-Public Use
  Company Number: US-009507513-1210USA006454

PATIENT

DRUGS (1)
  1. INTEGRILIN [Suspect]
     Indication: ANTIPLATELET THERAPY
     Route: 042

REACTIONS (1)
  - Haematoma [Unknown]
